FAERS Safety Report 9361901 (Version 1)
Quarter: 2013Q2

REPORT INFORMATION
  Report Type: Spontaneous
  Country: FR (occurrence: FR)
  Receive Date: 20130621
  Receipt Date: 20130621
  Transmission Date: 20140414
  Serious: Yes (Death)
  Sender: FDA-Public Use
  Company Number: FR-GLAXOSMITHKLINE-B0899570A

PATIENT
  Sex: 0

DRUGS (2)
  1. ARIXTRA [Suspect]
     Indication: PHLEBITIS SUPERFICIAL
     Route: 064
     Dates: start: 20120728, end: 20120730
  2. LOVENOX [Suspect]
     Indication: PHLEBITIS SUPERFICIAL
     Dosage: .7ML TWICE PER DAY
     Route: 064
     Dates: start: 20120730, end: 20120831

REACTIONS (3)
  - Foetal death [Fatal]
  - Foetal heart rate abnormal [Fatal]
  - Foetal exposure during pregnancy [Unknown]
